FAERS Safety Report 24326902 (Version 1)
Quarter: 2024Q3

REPORT INFORMATION
  Report Type: Report from Study
  Country: US (occurrence: None)
  Receive Date: 20240917
  Receipt Date: 20240917
  Transmission Date: 20241017
  Serious: Yes (Other)
  Sender: ASTRAZENECA
  Company Number: 2024A182385

PATIENT
  Sex: Female

DRUGS (2)
  1. TAGRISSO [Suspect]
     Active Substance: OSIMERTINIB
     Indication: Lung neoplasm malignant
     Route: 048
     Dates: start: 2024
  2. XGEVA [Concomitant]
     Active Substance: DENOSUMAB
     Indication: Bone cancer
     Dates: start: 202405

REACTIONS (11)
  - Bone cancer [Unknown]
  - Diarrhoea [Unknown]
  - Abdominal pain upper [Unknown]
  - Decreased appetite [Unknown]
  - Asthenia [Unknown]
  - Alopecia [Unknown]
  - Abdominal discomfort [Unknown]
  - Dry skin [Unknown]
  - Diarrhoea [Unknown]
  - Dry mouth [Unknown]
  - Fatigue [Unknown]
